FAERS Safety Report 12658097 (Version 1)
Quarter: 2016Q3

REPORT INFORMATION
  Report Type: Report from Study
  Country: US (occurrence: US)
  Receive Date: 20160817
  Receipt Date: 20160817
  Transmission Date: 20161109
  Serious: Yes (Death, Other)
  Sender: FDA-Public Use
  Company Number: US-ASTRAZENECA-2016SE58880

PATIENT
  Sex: Female

DRUGS (2)
  1. TAGRISSO [Suspect]
     Active Substance: OSIMERTINIB
     Indication: LUNG NEOPLASM MALIGNANT
     Dosage: 40 UNK
     Route: 048
     Dates: start: 20160517
  2. TAGRISSO [Suspect]
     Active Substance: OSIMERTINIB
     Indication: LUNG NEOPLASM MALIGNANT
     Dosage: 80 UNK
     Route: 048
     Dates: start: 20160517

REACTIONS (4)
  - Death [Fatal]
  - Fatigue [Recovering/Resolving]
  - Disease progression [Not Recovered/Not Resolved]
  - Metastases to bone [Not Recovered/Not Resolved]
